FAERS Safety Report 16650774 (Version 3)
Quarter: 2019Q4

REPORT INFORMATION
  Report Type: Spontaneous
  Country: US (occurrence: US)
  Receive Date: 20190731
  Receipt Date: 20191017
  Transmission Date: 20200122
  Serious: Yes (Other)
  Sender: FDA-Public Use
  Company Number: US-AUROBINDO-AUR-APL-2019-044772

PATIENT
  Age: 72 Year
  Sex: Male
  Weight: 95.25 kg

DRUGS (9)
  1. SULFAMETHOXAZOLE AND TRIMETHOPRIM TABLETS USP 800/160 MG [Suspect]
     Active Substance: SULFAMETHOXAZOLE\TRIMETHOPRIM
     Indication: PROSTATITIS
     Dosage: ONE TABLET AT 3 O CLOCK
     Route: 065
     Dates: start: 20190523, end: 20190524
  2. HYDROCHLOROTHIAZIDE. [Concomitant]
     Active Substance: HYDROCHLOROTHIAZIDE
     Indication: PRODUCT USED FOR UNKNOWN INDICATION
     Dosage: UNK
     Route: 065
  3. ASPIRIN. [Concomitant]
     Active Substance: ASPIRIN
     Indication: PRODUCT USED FOR UNKNOWN INDICATION
     Dosage: UNK
     Route: 065
  4. VITAMIN D [Concomitant]
     Active Substance: VITAMIN D NOS
     Indication: PRODUCT USED FOR UNKNOWN INDICATION
     Dosage: UNK
     Route: 065
  5. VITAMIN B12 [Concomitant]
     Active Substance: CYANOCOBALAMIN
     Indication: PRODUCT USED FOR UNKNOWN INDICATION
     Dosage: UNK
     Route: 065
  6. SULFAMETHOXAZOLE AND TRIMETHOPRIM TABLETS USP 800/160 MG [Suspect]
     Active Substance: SULFAMETHOXAZOLE\TRIMETHOPRIM
     Indication: URINARY TRACT INFECTION
  7. DOXYCYCLINE. [Concomitant]
     Active Substance: DOXYCYCLINE
     Indication: PRODUCT USED FOR UNKNOWN INDICATION
     Dosage: UNK
     Route: 065
  8. SULFAMETHOXAZOLE AND TRIMETHOPRIM TABLETS USP 800/160 MG [Suspect]
     Active Substance: SULFAMETHOXAZOLE\TRIMETHOPRIM
     Indication: NEPHROLITHIASIS
  9. NAPROXEN. [Concomitant]
     Active Substance: NAPROXEN
     Indication: PRODUCT USED FOR UNKNOWN INDICATION
     Dosage: UNK
     Route: 065

REACTIONS (15)
  - Syncope [Not Recovered/Not Resolved]
  - Feeling abnormal [Not Recovered/Not Resolved]
  - Ill-defined disorder [Not Recovered/Not Resolved]
  - Pain [Unknown]
  - Gait inability [Not Recovered/Not Resolved]
  - Hypoaesthesia [Not Recovered/Not Resolved]
  - Vision blurred [Not Recovered/Not Resolved]
  - Insomnia [Unknown]
  - Visual impairment [Not Recovered/Not Resolved]
  - Sciatica [Not Recovered/Not Resolved]
  - Burning sensation [Not Recovered/Not Resolved]
  - Malaise [Not Recovered/Not Resolved]
  - Restlessness [Unknown]
  - Amnesia [Unknown]
  - Paralysis [Not Recovered/Not Resolved]

NARRATIVE: CASE EVENT DATE: 20190524
